FAERS Safety Report 9691012 (Version 1)
Quarter: 2013Q4

REPORT INFORMATION
  Report Type: Spontaneous
  Country: US (occurrence: None)
  Receive Date: 20131114
  Receipt Date: 20131114
  Transmission Date: 20140711
  Serious: Yes (Death)
  Sender: FDA-Public Use
  Company Number: None

PATIENT
  Age: 1 Year
  Sex: Female

DRUGS (2)
  1. LIDOCAINE VISCOUS [Suspect]
     Indication: TEETHING
     Dosage: UNKNOWN
     Dates: start: 20130828
  2. LIDOCAINE VISCOUS [Suspect]
     Indication: IRRITABILITY
     Dosage: UNKNOWN
     Dates: start: 20130828

REACTIONS (4)
  - Convulsion [None]
  - Cardio-respiratory arrest [None]
  - Toxicity to various agents [None]
  - Accidental exposure to product by child [None]
